FAERS Safety Report 19628235 (Version 1)
Quarter: 2021Q3

REPORT INFORMATION
  Report Type: Report from Study
  Country: FR (occurrence: FR)
  Receive Date: 20210728
  Receipt Date: 20210728
  Transmission Date: 20211014
  Serious: Yes (Other)
  Sender: FDA-Public Use
  Company Number: FR-TAKEDA-2021TUS045156

PATIENT
  Age: 63 Year
  Sex: Female

DRUGS (8)
  1. TEDUGLUTIDE [Suspect]
     Active Substance: TEDUGLUTIDE
     Indication: PRODUCT USED FOR UNKNOWN INDICATION
     Dosage: 2.350 MILLIGRAM, QD
     Route: 065
     Dates: start: 20191022
  2. LANSOPRAZOLE. [Concomitant]
     Active Substance: LANSOPRAZOLE
     Indication: SHORT-BOWEL SYNDROME
     Dosage: 30 MILLIGRAM, QD
     Route: 048
  3. TEDUGLUTIDE [Suspect]
     Active Substance: TEDUGLUTIDE
     Indication: PRODUCT USED FOR UNKNOWN INDICATION
     Dosage: 2.350 MILLIGRAM, QD
     Route: 065
     Dates: start: 20191022
  4. TEDUGLUTIDE [Suspect]
     Active Substance: TEDUGLUTIDE
     Indication: PRODUCT USED FOR UNKNOWN INDICATION
     Dosage: 2.350 MILLIGRAM, QD
     Route: 065
     Dates: start: 20191022
  5. ARIXTRA [Concomitant]
     Active Substance: FONDAPARINUX SODIUM
     Indication: VENOUS THROMBOSIS
     Dosage: 7.50 MILLIGRAM, QD
     Route: 058
     Dates: start: 20201116
  6. LORAMIDE [Concomitant]
     Indication: SHORT-BOWEL SYNDROME
     Dosage: 2 DOSAGE FORM, QID
     Route: 048
     Dates: start: 2017
  7. TEDUGLUTIDE [Suspect]
     Active Substance: TEDUGLUTIDE
     Indication: PRODUCT USED FOR UNKNOWN INDICATION
     Dosage: 2.350 MILLIGRAM, QD
     Route: 065
     Dates: start: 20191022
  8. CALCIUM [Concomitant]
     Active Substance: CALCIUM
     Indication: MALABSORPTION
     Dosage: 1000 MILLIGRAM, QD
     Route: 048

REACTIONS (1)
  - Subclavian vein thrombosis [Recovered/Resolved]

NARRATIVE: CASE EVENT DATE: 20201116
